FAERS Safety Report 7061535-9 (Version None)
Quarter: 2010Q4

REPORT INFORMATION
  Report Type: 
  Country: None (occurrence: None)
  Receive Date: 20101026
  Receipt Date: 20101013
  Transmission Date: 20110411
  Serious: Yes (Other)
  Sender: FDA-Public Use
  Company Number: US-ELI_LILLY_AND_COMPANY-US201008002936

PATIENT
  Age: 63 Year
  Sex: Female

DRUGS (2)
  1. FORTEO [Suspect]
     Indication: OSTEOPOROSIS
     Dosage: 20 UG, DAILY (1/D)
  2. SPORANOX [Concomitant]
     Indication: ANTIFUNGAL TREATMENT

REACTIONS (6)
  - DRY EYE [None]
  - ESSENTIAL THROMBOCYTHAEMIA [None]
  - PAIN IN JAW [None]
  - TOOTH EXTRACTION [None]
  - VISION BLURRED [None]
  - VISUAL IMPAIRMENT [None]
